FAERS Safety Report 5897568-5 (Version None)
Quarter: 2008Q3

REPORT INFORMATION
  Report Type: 
  Country: None (occurrence: None)
  Receive Date: 20080916
  Receipt Date: 20080512
  Transmission Date: 20090109
  Serious: Yes (Hospitalization)
  Sender: FDA-Public Use
  Company Number: S08-USA-01698-01

PATIENT
  Age: 69 Year
  Sex: Female

DRUGS (8)
  1. CELEXA [Suspect]
     Dosage: 30 MG (30 MG,AT BEDTIME),ORAL
     Route: 048
     Dates: end: 20080508
  2. CELEXA [Suspect]
     Dosage: 20 MG (20 MG,AT BEDTIME),ORAL
     Route: 048
     Dates: start: 20080509
  3. TYLENOL (PARACETAMOL) (PARACETAMOL) [Concomitant]
  4. XANAX (ALPRAZOLAM) (ALPRAZOLAM) [Concomitant]
  5. MULTI-VITAMIN [Concomitant]
  6. LOVENOX (HEPARIN-FRACTION, SODIUM SALT) (HEPARIN-FRACTION, SODIUM SALT [Concomitant]
  7. ACIPHEX (RABEPRAZOLE SODIUM) (RABEPRAZOLE SODIUM) [Concomitant]
  8. VITAMIN B12 (VITAMIN B12) (INJECTION) (VITAMIN B12) [Concomitant]

REACTIONS (2)
  - BLOOD POTASSIUM DECREASED [None]
  - SYNCOPE VASOVAGAL [None]
